FAERS Safety Report 8015329-8 (Version None)
Quarter: 2011Q4

REPORT INFORMATION
  Report Type: 
  Country: None (occurrence: None)
  Receive Date: 20111223
  Receipt Date: 20111208
  Transmission Date: 20120403
  Serious: Yes (Other)
  Sender: FDA-Public Use
  Company Number: 2011AP002996

PATIENT
  Age: 80 Year
  Sex: Female

DRUGS (8)
  1. SIMVASTATIN [Concomitant]
  2. SPIRONOLACTONE [Concomitant]
  3. FLUTICASONE PROPIONATE [Suspect]
     Indication: COUGH
     Dosage: 1 SPR, QD, QOD, NAS
     Route: 045
     Dates: start: 20111016, end: 20111201
  4. FLUTICASONE PROPIONATE [Suspect]
     Indication: UPPER-AIRWAY COUGH SYNDROME
     Dosage: 1 SPR, QD, QOD, NAS
     Route: 045
     Dates: start: 20111016, end: 20111201
  5. FLUTICASONE PROPIONATE [Suspect]
     Indication: COUGH
     Dosage: 1 SPR, QD, QOD, NAS
     Route: 045
     Dates: start: 20110917
  6. FLUTICASONE PROPIONATE [Suspect]
     Indication: UPPER-AIRWAY COUGH SYNDROME
     Dosage: 1 SPR, QD, QOD, NAS
     Route: 045
     Dates: start: 20110917
  7. AMLODIPINE [Concomitant]
  8. BUMETANIDE [Concomitant]

REACTIONS (3)
  - EPISTAXIS [None]
  - NASAL DISCOMFORT [None]
  - NASAL DRYNESS [None]
